FAERS Safety Report 8399365-8 (Version None)
Quarter: 2012Q2

REPORT INFORMATION
  Report Type: 
  Country: None (occurrence: None)
  Receive Date: 20120531
  Receipt Date: 20120522
  Transmission Date: 20120825
  Serious: Yes (Other)
  Sender: FDA-Public Use
  Company Number: US-ASTRAZENECA-2011SE26257

PATIENT
  Age: 52 Year
  Sex: Male

DRUGS (8)
  1. SEROQUEL [Suspect]
     Route: 048
  2. SEROQUEL [Suspect]
     Route: 048
  3. SEROQUEL [Suspect]
     Route: 048
  4. SEROQUEL [Suspect]
     Indication: DEPRESSION
     Route: 048
  5. SEROQUEL [Suspect]
     Indication: ANXIETY
     Route: 048
  6. SEROQUEL [Suspect]
     Indication: BIPOLAR DISORDER
     Route: 048
  7. SEROQUEL [Suspect]
     Indication: POST-TRAUMATIC STRESS DISORDER
     Route: 048
  8. SEROQUEL [Suspect]
     Route: 048

REACTIONS (18)
  - FALL [None]
  - PAIN [None]
  - INSOMNIA [None]
  - URINARY TRACT INFECTION [None]
  - INTENTIONAL DRUG MISUSE [None]
  - CERVICAL VERTEBRAL FRACTURE [None]
  - BLOOD CHOLESTEROL INCREASED [None]
  - SPINAL FRACTURE [None]
  - ROAD TRAFFIC ACCIDENT [None]
  - OFF LABEL USE [None]
  - PANIC ATTACK [None]
  - HEARING IMPAIRED [None]
  - PARANOIA [None]
  - TINNITUS [None]
  - NEOPLASM MALIGNANT [None]
  - MALAISE [None]
  - DRUG EFFECT PROLONGED [None]
  - JOINT INJURY [None]
